FAERS Safety Report 9164387 (Version 1)
Quarter: 2013Q1

REPORT INFORMATION
  Report Type: Spontaneous
  Country: IN (occurrence: None)
  Receive Date: 20130226
  Receipt Date: 20130226
  Transmission Date: 20140127
  Serious: Yes (Other)
  Sender: FDA-Public Use
  Company Number: 2013P1002343

PATIENT
  Age: 45 Year
  Sex: Female

DRUGS (5)
  1. FLUOXETINE [Suspect]
     Indication: OBSESSIVE-COMPULSIVE DISORDER
  2. ALPRAZOLAM [Concomitant]
  3. QUETIAPINE [Concomitant]
  4. CLOMIPRAMINE [Concomitant]
  5. THYRONORM [Concomitant]

REACTIONS (3)
  - Respiratory tract infection [None]
  - White blood cell count decreased [None]
  - Hepatic steatosis [None]
